FAERS Safety Report 11082124 (Version 3)
Quarter: 2015Q3

REPORT INFORMATION
  Report Type: Spontaneous
  Country: JP (occurrence: JP)
  Receive Date: 20150501
  Receipt Date: 20150714
  Transmission Date: 20151125
  Serious: Yes (Death, Hospitalization, Other)
  Sender: FDA-Public Use
  Company Number: JP-GLAXOSMITHKLINE-JP2015JPN057291

PATIENT
  Age: 86 Year
  Sex: Male
  Weight: 35 kg

DRUGS (1)
  1. VALTREX [Suspect]
     Active Substance: VALACYCLOVIR HYDROCHLORIDE
     Indication: HERPES ZOSTER
     Dosage: 3000 MG, 1D
     Route: 048
     Dates: start: 20150424

REACTIONS (8)
  - Lung abscess [Fatal]
  - Urine output decreased [Unknown]
  - Anuria [Unknown]
  - Renal disorder [Recovered/Resolved]
  - Pleural effusion [Unknown]
  - Pneumonia aspiration [Fatal]
  - Pyrexia [Not Recovered/Not Resolved]
  - Renal failure [Recovered/Resolved]

NARRATIVE: CASE EVENT DATE: 20150426
